FAERS Safety Report 16527734 (Version 1)
Quarter: 2019Q3

REPORT INFORMATION
  Report Type: Spontaneous
  Country: CN (occurrence: CN)
  Receive Date: 20190703
  Receipt Date: 20190703
  Transmission Date: 20191004
  Serious: Yes (Hospitalization)
  Sender: FDA-Public Use
  Company Number: CN-NOVOPROD-669673

PATIENT
  Age: 75 Year
  Sex: Female
  Weight: 64 kg

DRUGS (16)
  1. LANTUS [Suspect]
     Active Substance: INSULIN GLARGINE
     Indication: HYPERTENSION
  2. GLUCOBAY [Suspect]
     Active Substance: ACARBOSE
     Indication: HYPERTENSION
  3. GLUCOPHAGE [Suspect]
     Active Substance: METFORMIN HYDROCHLORIDE
     Indication: INFARCTION
  4. GLUCOPHAGE [Suspect]
     Active Substance: METFORMIN HYDROCHLORIDE
     Indication: DIABETES MELLITUS
     Dosage: 0.5 G, QD
     Route: 048
     Dates: start: 20190515
  5. GLUCOBAY [Suspect]
     Active Substance: ACARBOSE
     Indication: VERTIGO
  6. GLUCOBAY [Suspect]
     Active Substance: ACARBOSE
     Indication: INFARCTION
  7. NOVORAPID [Suspect]
     Active Substance: INSULIN ASPART
     Indication: VERTIGO
     Dosage: 12 IU QD
     Route: 058
     Dates: start: 20190522
  8. NOVORAPID [Suspect]
     Active Substance: INSULIN ASPART
     Indication: DIABETES MELLITUS
     Dosage: 14 IU, TID
     Route: 058
  9. NOVORAPID [Suspect]
     Active Substance: INSULIN ASPART
     Indication: HYPERTENSION
  10. LANTUS [Suspect]
     Active Substance: INSULIN GLARGINE
     Indication: VERTIGO
     Dosage: 18 IU QD
     Route: 058
     Dates: start: 20190522
  11. NOVORAPID [Suspect]
     Active Substance: INSULIN ASPART
     Indication: INFARCTION
     Dosage: 10 IU, QD
     Route: 058
     Dates: start: 20190524
  12. GLUCOPHAGE [Suspect]
     Active Substance: METFORMIN HYDROCHLORIDE
     Indication: VERTIGO
     Dosage: 0.5 G, TID
     Route: 048
     Dates: start: 20190519, end: 20190521
  13. GLUCOPHAGE [Suspect]
     Active Substance: METFORMIN HYDROCHLORIDE
     Indication: HYPERTENSION
  14. GLUCOBAY [Suspect]
     Active Substance: ACARBOSE
     Indication: DIABETES MELLITUS
     Dosage: 50 MG, TID
     Route: 048
     Dates: start: 20190515, end: 20190527
  15. LANTUS [Suspect]
     Active Substance: INSULIN GLARGINE
     Indication: DIABETES MELLITUS
     Dosage: 20 IU, QD
     Route: 058
  16. LANTUS [Suspect]
     Active Substance: INSULIN GLARGINE
     Indication: INFARCTION

REACTIONS (2)
  - Hospitalisation [Unknown]
  - Hypoglycaemia [Recovered/Resolved]

NARRATIVE: CASE EVENT DATE: 20190514
